FAERS Safety Report 7004476-5 (Version None)
Quarter: 2010Q3

REPORT INFORMATION
  Report Type: 
  Country: None (occurrence: None)
  Receive Date: 20100921
  Receipt Date: 20100913
  Transmission Date: 20110219
  Serious: No
  Sender: FDA-Public Use
  Company Number: US-BIOGENIDEC-2010BI032091

PATIENT
  Age: 28 Year
  Sex: Female

DRUGS (2)
  1. TYSABRI [Suspect]
     Indication: MULTIPLE SCLEROSIS
     Route: 042
     Dates: start: 20100511
  2. BLOOD PRESSURE MEDICATION (NOS) [Concomitant]

REACTIONS (4)
  - CONTUSION [None]
  - HEADACHE [None]
  - MYALGIA [None]
  - POOR VENOUS ACCESS [None]
